FAERS Safety Report 6139362-6 (Version None)
Quarter: 2009Q2

REPORT INFORMATION
  Report Type: 
  Country: None (occurrence: None)
  Receive Date: 20090401
  Receipt Date: 20090323
  Transmission Date: 20091009
  Serious: Yes (Other)
  Sender: FDA-Public Use
  Company Number: FR-ROCHE-622941

PATIENT
  Age: 59 Year

DRUGS (5)
  1. XELODA [Suspect]
     Route: 065
  2. XELODA [Interacting]
     Dosage: STARTED WITH 1800 MG TWICE; THE PATIENT CURRENTLY WAS IN 31TH CYCLE AT DOSAGE OF 3600 MG TWICE DAILY
     Route: 065
  3. FOLIC ACID [Interacting]
     Indication: DRUG USE FOR UNKNOWN INDICATION
     Route: 065
  4. METHIONINE [Interacting]
     Indication: DRUG USE FOR UNKNOWN INDICATION
     Route: 065
  5. NICOTINAMIDE [Interacting]
     Indication: DRUG USE FOR UNKNOWN INDICATION
     Route: 065

REACTIONS (4)
  - DIARRHOEA [None]
  - DRUG INTERACTION [None]
  - MUCOSAL INFLAMMATION [None]
  - PALMAR-PLANTAR ERYTHRODYSAESTHESIA SYNDROME [None]
